FAERS Safety Report 10227138 (Version 3)
Quarter: 2014Q3

REPORT INFORMATION
  Report Type: Spontaneous
  Country: US (occurrence: US)
  Receive Date: 20140610
  Receipt Date: 20140711
  Transmission Date: 20150326
  Serious: Yes (Other)
  Sender: FDA-Public Use
  Company Number: US-009507513-1406USA000288

PATIENT
  Sex: Female

DRUGS (1)
  1. FOSAMAX [Suspect]
     Active Substance: ALENDRONATE SODIUM
     Indication: OSTEOPOROSIS
     Dosage: UNK
     Route: 048

REACTIONS (17)
  - Drug hypersensitivity [Unknown]
  - Hyperlipidaemia [Unknown]
  - Arteriosclerosis coronary artery [Unknown]
  - Stent placement [Unknown]
  - Cataract operation [Unknown]
  - Neuropathy peripheral [Unknown]
  - Anaemia vitamin B12 deficiency [Unknown]
  - Herpes zoster [Unknown]
  - Cholecystectomy [Unknown]
  - Hypothyroidism [Unknown]
  - Knee arthroplasty [Unknown]
  - Intervertebral disc operation [Unknown]
  - Cough [Unknown]
  - Hypertension [Unknown]
  - Stent placement [Unknown]
  - Abdominal discomfort [Unknown]
  - Dyslipidaemia [Unknown]

NARRATIVE: CASE EVENT DATE: 2004
